FAERS Safety Report 6661255-6 (Version None)
Quarter: 2010Q1

REPORT INFORMATION
  Report Type: 
  Country: None (occurrence: None)
  Receive Date: 20100331
  Receipt Date: 20100322
  Transmission Date: 20100710
  Serious: Yes (Other)
  Sender: FDA-Public Use
  Company Number: US-AMGEN-QUU401189

PATIENT
  Sex: Female

DRUGS (2)
  1. ENBREL [Suspect]
     Indication: RHEUMATOID ARTHRITIS
     Route: 058
     Dates: start: 20070615, end: 20100313
  2. METHOTREXATE [Concomitant]
     Dates: end: 20100317

REACTIONS (2)
  - BLINDNESS UNILATERAL [None]
  - LYMPHOMA [None]
